FAERS Safety Report 6651457-7 (Version None)
Quarter: 2010Q1

REPORT INFORMATION
  Report Type: 
  Country: None (occurrence: None)
  Receive Date: 20100325
  Receipt Date: 20100317
  Transmission Date: 20100710
  Serious: Yes (Hospitalization)
  Sender: FDA-Public Use
  Company Number: JP-ROCHE-687189

PATIENT
  Sex: Male

DRUGS (24)
  1. DENOSINE IV [Suspect]
     Indication: CYTOMEGALOVIRUS VIRAEMIA
     Dosage: OTHER INDICATION: APLASTIC ANAEMIA (AFTER CORD BLOOD TRANSPLANT)
     Route: 041
     Dates: start: 20090319, end: 20090413
  2. DENOSINE IV [Suspect]
     Route: 041
     Dates: start: 20090512, end: 20090528
  3. DENOSINE IV [Suspect]
     Route: 041
     Dates: start: 20090606, end: 20090611
  4. METHOTREXATE [Suspect]
     Indication: STEM CELL TRANSPLANT
     Route: 065
  5. TACROLIMUS HYDRATE [Suspect]
     Indication: STEM CELL TRANSPLANT
     Route: 065
  6. MELPHALAN HYDROCHLORIDE [Suspect]
     Indication: STEM CELL TRANSPLANT
     Route: 065
  7. FLUDARABINE PHOSPHATE [Suspect]
     Indication: STEM CELL TRANSPLANT
     Route: 065
     Dates: start: 20080101, end: 20080101
  8. HEPARIN [Concomitant]
     Dosage: DRUG RPTD: HEPARIN NA LOCK
     Route: 051
     Dates: start: 20090408, end: 20090413
  9. POTACOL-R [Concomitant]
     Route: 041
     Dates: start: 20090408, end: 20090413
  10. SODIUM CHLORIDE [Concomitant]
     Dosage: DRUG RPTD: ISOTONIC SODIUM CHLORIDE
     Route: 051
     Dates: start: 20090408, end: 20090413
  11. ACTIT [Concomitant]
     Route: 042
     Dates: start: 20090408, end: 20090413
  12. METHYCOBAL [Concomitant]
     Route: 048
     Dates: start: 20090408, end: 20090421
  13. PHYSISALZ [Concomitant]
     Dosage: DRUG RPTD: PHYSISALZ PL-D
     Route: 042
     Dates: start: 20090409, end: 20090413
  14. MODACIN [Concomitant]
     Route: 042
     Dates: start: 20090409, end: 20090409
  15. CEFTAZIDIME [Concomitant]
     Route: 042
     Dates: start: 20090410, end: 20090413
  16. HABEKACIN [Concomitant]
     Route: 041
     Dates: start: 20090411, end: 20090412
  17. PROGRAF [Concomitant]
     Route: 048
     Dates: start: 20090411, end: 20090412
  18. ITRIZOLE [Concomitant]
     Route: 041
     Dates: start: 20090413, end: 20090416
  19. ITRIZOLE [Concomitant]
     Route: 041
     Dates: start: 20090416, end: 20090421
  20. LASIX [Concomitant]
     Route: 048
     Dates: start: 20090414, end: 20090421
  21. GLYCYRON [Concomitant]
     Route: 048
     Dates: start: 20090414, end: 20090421
  22. FAMOTIDINE [Concomitant]
     Route: 048
     Dates: start: 20090414, end: 20090421
  23. URSO 250 [Concomitant]
     Route: 048
     Dates: start: 20090414, end: 20090421
  24. ALDACTONE [Concomitant]
     Route: 048
     Dates: start: 20090414, end: 20090421

REACTIONS (1)
  - ORGANISING PNEUMONIA [None]
